FAERS Safety Report 21751991 (Version 2)
Quarter: 2022Q4

REPORT INFORMATION
  Report Type: Spontaneous
  Country: CA (occurrence: CA)
  Receive Date: 20221220
  Receipt Date: 20221221
  Transmission Date: 20230112
  Serious: Yes (Death)
  Sender: FDA-Public Use
  Company Number: CA-BAYER-2022A171675

PATIENT
  Sex: Female

DRUGS (2)
  1. EYLEA [Suspect]
     Active Substance: AFLIBERCEPT
     Indication: Eye disorder
     Dosage: UNK SOLUTION FOR INJECTION, STRENGTH:40MG/ML
     Route: 031
     Dates: start: 20200110, end: 20200110
  2. EYLEA [Suspect]
     Active Substance: AFLIBERCEPT
     Dosage: UNK SOLUTION FOR INJECTION, STRENGTH:40MG/ML
     Dates: start: 20221020, end: 20221020

REACTIONS (1)
  - Death [Fatal]

NARRATIVE: CASE EVENT DATE: 20221208
